FAERS Safety Report 7166216-9 (Version None)
Quarter: 2010Q4

REPORT INFORMATION
  Report Type: 
  Country: None (occurrence: None)
  Receive Date: 20101216
  Receipt Date: 20101204
  Transmission Date: 20110411
  Serious: Yes (Death, Hospitalization)
  Sender: FDA-Public Use
  Company Number: US-CELGENEUS-163-20785-10110627

PATIENT
  Sex: Female

DRUGS (7)
  1. THALOMID [Suspect]
     Indication: MULTIPLE MYELOMA
     Route: 048
     Dates: start: 20100909, end: 20101001
  2. THALOMID [Suspect]
     Route: 048
     Dates: start: 20081229, end: 20100101
  3. WARFARIN [Concomitant]
     Indication: ATRIAL FIBRILLATION
     Route: 048
  4. DIOVAN HCT [Concomitant]
     Indication: HYPERTENSION
     Dosage: 160/12.5MG
     Route: 048
  5. SIMVASTATIN [Concomitant]
     Route: 048
  6. FISH OIL [Concomitant]
     Route: 048
  7. METOPROLOL [Concomitant]
     Indication: HYPERTENSION
     Route: 048

REACTIONS (4)
  - COAGULATION TIME PROLONGED [None]
  - DEHYDRATION [None]
  - DIARRHOEA [None]
  - HYPOTENSION [None]
